FAERS Safety Report 18806748 (Version 1)
Quarter: 2021Q1

REPORT INFORMATION
  Report Type: Spontaneous
  Country: IT (occurrence: IT)
  Receive Date: 20210129
  Receipt Date: 20210129
  Transmission Date: 20210419
  Serious: Yes (Hospitalization)
  Sender: FDA-Public Use
  Company Number: IT-TEVA-2021-IT-1873140

PATIENT
  Age: 42 Year
  Sex: Male

DRUGS (1)
  1. REPAGLINIDE. [Suspect]
     Active Substance: REPAGLINIDE
     Indication: MEDICATION ERROR
     Dosage: 3 DOSAGE FORMS
     Route: 048
     Dates: start: 20210109, end: 20210109

REACTIONS (3)
  - Medication error [Unknown]
  - Syncope [Unknown]
  - Hypoglycaemia [Unknown]

NARRATIVE: CASE EVENT DATE: 20210109
